FAERS Safety Report 5143277-X (Version None)
Quarter: 2006Q4

REPORT INFORMATION
  Report Type: 
  Country: None (occurrence: None)
  Receive Date: 20061103
  Receipt Date: 20060905
  Transmission Date: 20070319
  Serious: Yes (Hospitalization)
  Sender: FDA-Public Use
  Company Number: CA-ROCHE-462016

PATIENT
  Age: 50 Year
  Sex: Female
  Weight: 62.5 kg

DRUGS (20)
  1. DACLIZUMAB [Suspect]
     Indication: MULTIPLE SCLEROSIS
     Route: 058
     Dates: start: 20060109, end: 20060530
  2. INTERFERON BETA-1A [Concomitant]
     Dates: start: 20050115
  3. ALERTEC [Concomitant]
     Dates: start: 20010615
  4. OMEGA-3 TRIGLYCERIDES [Concomitant]
     Dosage: REPORTED AS OMEGA 3.
     Dates: start: 20050115
  5. VITAMIN D [Concomitant]
     Dates: start: 20050115
  6. VITAMIN B-12 [Concomitant]
     Dates: start: 20050115
  7. MSM JOINT FORMULA [Concomitant]
     Dosage: REPORTED AS MSM.
     Dates: start: 20050115
  8. DOCUSATE SODIUM [Concomitant]
     Dates: start: 20060405
  9. GABAPENTIN [Concomitant]
     Dates: start: 20060620
  10. LACTULOSE [Concomitant]
     Dates: start: 20060702
  11. LYRICA [Concomitant]
     Dates: start: 20060725
  12. BACLOFEN [Concomitant]
     Dates: start: 20060625
  13. ACETAMINOPHEN AND CODEINE PHOSPHATE [Concomitant]
     Dates: start: 20060702
  14. OLANZAPINE [Concomitant]
     Dates: start: 20060805
  15. DURAGESIC-100 [Concomitant]
     Dosage: REPORTED AS DURAGESIC / 00174601/
     Dates: start: 20060802
  16. LIPITOR [Concomitant]
     Dates: start: 20060802
  17. CLONAZEPAM [Concomitant]
     Dates: start: 20060802
  18. AMITRIPTYLINE HCL [Concomitant]
     Dates: start: 20060418
  19. ZYPREXA [Concomitant]
     Dates: start: 20060805
  20. IBUPROFEN [Concomitant]
     Dates: start: 20060824

REACTIONS (16)
  - ABDOMINAL PAIN [None]
  - ANXIETY [None]
  - ASTHENIA [None]
  - BACK PAIN [None]
  - BLOOD POTASSIUM DECREASED [None]
  - CLOSTRIDIUM DIFFICILE COLITIS [None]
  - CONSTIPATION [None]
  - DEHYDRATION [None]
  - DENTAL CARIES [None]
  - DEPRESSED LEVEL OF CONSCIOUSNESS [None]
  - EAR PAIN [None]
  - NECK PAIN [None]
  - PANIC ATTACK [None]
  - SEPSIS [None]
  - SOMNOLENCE [None]
  - TOOTH ABSCESS [None]
